FAERS Safety Report 21133839 (Version 1)
Quarter: 2022Q3

REPORT INFORMATION
  Report Type: Report from Study
  Country: HU (occurrence: HU)
  Receive Date: 20220726
  Receipt Date: 20220726
  Transmission Date: 20221027
  Serious: Yes (Death, Hospitalization)
  Sender: FDA-Public Use
  Company Number: HU-ABBVIE-18P-076-2404362-00

PATIENT
  Age: 64 Year
  Sex: Male

DRUGS (17)
  1. PLACEBO [Suspect]
     Active Substance: UNSPECIFIED INGREDIENT
     Indication: Rheumatoid arthritis
     Route: 065
     Dates: start: 20170113, end: 20170713
  2. UPADACITINIB [Suspect]
     Active Substance: UPADACITINIB
     Indication: Rheumatoid arthritis
     Route: 048
     Dates: start: 20170714, end: 20180308
  3. MEDROL [Concomitant]
     Active Substance: METHYLPREDNISOLONE
     Indication: Rheumatoid arthritis
     Route: 048
     Dates: start: 20161017, end: 20180615
  4. MEDROL [Concomitant]
     Active Substance: METHYLPREDNISOLONE
     Route: 048
     Dates: start: 20180616
  5. ARCOXIA [Concomitant]
     Active Substance: ETORICOXIB
     Indication: Rheumatoid arthritis
     Route: 048
     Dates: start: 20161017
  6. TREXAN [Concomitant]
     Indication: Rheumatoid arthritis
     Route: 048
     Dates: start: 20160324, end: 20180615
  7. TREXAN [Concomitant]
     Route: 048
     Dates: start: 20180616
  8. FOLSAV [Concomitant]
     Indication: Vitamin supplementation
     Route: 048
     Dates: start: 20150410
  9. NEO-FERRO-FOLGAMMA [Concomitant]
     Indication: Anaemia
     Route: 048
     Dates: start: 201507
  10. FENOTEROL HYDROBROMIDE\IPRATROPIUM BROMIDE [Concomitant]
     Active Substance: FENOTEROL HYDROBROMIDE\IPRATROPIUM BROMIDE
     Indication: Chronic obstructive pulmonary disease
     Route: 055
     Dates: start: 201504
  11. PANANGIN FORTE [Concomitant]
     Indication: Myocardial ischaemia
     Route: 048
     Dates: start: 201507
  12. RUTASCORBIN [Concomitant]
     Indication: Prophylaxis
     Route: 048
     Dates: start: 201509
  13. PANTOPRAZOLE SODIUM [Concomitant]
     Active Substance: PANTOPRAZOLE SODIUM
     Indication: Prophylaxis
     Route: 048
     Dates: start: 201603
  14. SYNCUMAR [Concomitant]
     Active Substance: ACENOCOUMAROL
     Indication: Thrombosis prophylaxis
     Route: 048
     Dates: start: 20160923, end: 20180614
  15. SYNCUMAR [Concomitant]
     Active Substance: ACENOCOUMAROL
     Route: 048
     Dates: start: 20180615, end: 20180616
  16. SYNCUMAR [Concomitant]
     Active Substance: ACENOCOUMAROL
     Route: 048
     Dates: start: 20180617
  17. CALCIUM [Concomitant]
     Active Substance: CALCIUM
     Indication: Hypoaesthesia
     Route: 048
     Dates: start: 20170407

REACTIONS (1)
  - Meningitis bacterial [Fatal]

NARRATIVE: CASE EVENT DATE: 20180602
